FAERS Safety Report 8812107 (Version 1)
Quarter: 2012Q4

REPORT INFORMATION
  Report Type: Spontaneous
  Country: US (occurrence: None)
  Receive Date: 20120925
  Receipt Date: 20120925
  Transmission Date: 20130627
  Serious: Yes (Hospitalization)
  Sender: FDA-Public Use
  Company Number: 2012NUEUSA00128

PATIENT
  Age: 71 Year
  Sex: Female

DRUGS (12)
  1. NUEDEXTA [Suspect]
     Indication: PSEUDOBULBAR AFFECT
     Dosage: 1 cap, qd
     Dates: start: 20120810, end: 20120829
  2. NUEDEXTA [Suspect]
     Indication: PSEUDOBULBAR AFFECT
     Dosage: 1 Cap, bid
     Dates: start: 20120830, end: 20120912
  3. ATIVAN (LORAZEPAM) [Suspect]
     Indication: SITUATIONAL ANXIETY
     Dosage: 1 mg, qHS
     Dates: start: 20120206
  4. ATIVAN (LORAZEPAM) [Suspect]
     Indication: SITUATIONAL ANXIETY
     Dates: start: 20120207
  5. REMERON (MIRTAZAPINE) [Concomitant]
  6. VALPROIC ACID (VALPROIC ACID) [Concomitant]
  7. ZOCOR (SIMVASTATIN) [Concomitant]
  8. ARICEPT (DONEPEZIL HYDROCHLORIDE) [Concomitant]
  9. NEURONTIN (GABAPENTIN) [Concomitant]
  10. EXELON (RIVASTIGMINE TARTRATE) [Concomitant]
  11. MULTIVITAMIN (VITAMINS NOS) [Concomitant]
  12. ASA (ACETYLSALICYLIC ACID) [Concomitant]

REACTIONS (3)
  - Hip fracture [None]
  - Fall [None]
  - Femoral neck fracture [None]
